FAERS Safety Report 19430913 (Version 1)
Quarter: 2021Q2

REPORT INFORMATION
  Report Type: Spontaneous
  Country: US (occurrence: US)
  Receive Date: 20210618
  Receipt Date: 20210618
  Transmission Date: 20210717
  Serious: No
  Sender: FDA-Public Use
  Company Number: US-ROCHE-2807399

PATIENT
  Sex: Female
  Weight: 72.64 kg

DRUGS (8)
  1. LEXAPRO [Concomitant]
     Active Substance: ESCITALOPRAM OXALATE
     Dosage: 5MG TABS 3 TABS DAILY
  2. MEGESTROL ACETATE. [Concomitant]
     Active Substance: MEGESTROL ACETATE
  3. PREDNISONE. [Concomitant]
     Active Substance: PREDNISONE
     Indication: POLYMYALGIA RHEUMATICA
     Dates: start: 20200917
  4. ACTEMRA [Suspect]
     Active Substance: TOCILIZUMAB
     Indication: POLYMYALGIA RHEUMATICA
     Route: 058
     Dates: start: 20200917
  5. LORAZEPAM. [Concomitant]
     Active Substance: LORAZEPAM
  6. PROCARDIA XL [Concomitant]
     Active Substance: NIFEDIPINE
     Indication: HYPERTENSION
  7. PREDNISONE. [Concomitant]
     Active Substance: PREDNISONE
  8. TOPROL XL [Concomitant]
     Active Substance: METOPROLOL SUCCINATE
     Indication: HYPERTENSION

REACTIONS (4)
  - Peripheral swelling [Not Recovered/Not Resolved]
  - Breast swelling [Not Recovered/Not Resolved]
  - Gastric disorder [Not Recovered/Not Resolved]
  - Off label use [Unknown]
